FAERS Safety Report 23858587 (Version 2)
Quarter: 2024Q2

REPORT INFORMATION
  Report Type: Spontaneous
  Country: GB (occurrence: GB)
  Receive Date: 20240515
  Receipt Date: 20240610
  Transmission Date: 20240716
  Serious: Yes (Death)
  Sender: FDA-Public Use
  Company Number: GB-BEH-2024172004

PATIENT
  Age: 71 Year
  Sex: Female

DRUGS (3)
  1. BERIPLEX P/N [Suspect]
     Active Substance: COAGULATION FACTOR IX HUMAN\COAGULATION FACTOR VII HUMAN\COAGULATION FACTOR X HUMAN\PROTEIN C\PROTEI
     Indication: Haemorrhage prophylaxis
     Dosage: UNK
     Route: 065
     Dates: start: 202001
  2. BERIPLEX P/N [Suspect]
     Active Substance: COAGULATION FACTOR IX HUMAN\COAGULATION FACTOR VII HUMAN\COAGULATION FACTOR X HUMAN\PROTEIN C\PROTEI
     Indication: Haemorrhage prophylaxis
     Dosage: UNK
     Route: 065
     Dates: start: 202001
  3. WARFARIN [Concomitant]
     Active Substance: WARFARIN

REACTIONS (4)
  - Cerebral haemorrhage [Fatal]
  - Inappropriate schedule of product administration [Unknown]
  - Circumstance or information capable of leading to medication error [Unknown]
  - Product communication issue [Unknown]

NARRATIVE: CASE EVENT DATE: 20200101
